FAERS Safety Report 4642836-8 (Version None)
Quarter: 2005Q2

REPORT INFORMATION
  Report Type: 
  Country: None (occurrence: None)
  Receive Date: 20050420
  Receipt Date: 20050412
  Transmission Date: 20051028
  Serious: Yes (Disabling, Other)
  Sender: FDA-Public Use
  Company Number: 2005058884

PATIENT
  Sex: Female
  Weight: 78 kg

DRUGS (3)
  1. LIPITOR [Suspect]
     Indication: BLOOD CHOLESTEROL INCREASED
     Dosage: 40 MG (40 MG, 1 IN 1 D), ORAL
     Route: 048
  2. HYDROCORTISONE [Concomitant]
  3. INDAPAMIDE [Concomitant]

REACTIONS (1)
  - ADRENOCORTICAL INSUFFICIENCY ACUTE [None]
